FAERS Safety Report 16464408 (Version 1)
Quarter: 2019Q2

REPORT INFORMATION
  Report Type: Report from Study
  Country: None (occurrence: CA)
  Receive Date: 20190621
  Receipt Date: 20190621
  Transmission Date: 20190711
  Serious: Yes (Hospitalization)
  Sender: FDA-Public Use
  Company Number: CA-ABBVIE-19K-028-2797227-00

PATIENT
  Age: 15 Year
  Sex: Female
  Weight: 82.3 kg

DRUGS (1)
  1. HUMIRA [Suspect]
     Active Substance: ADALIMUMAB
     Indication: CROHN^S DISEASE
     Route: 058
     Dates: start: 20181219

REACTIONS (6)
  - Oropharyngeal pain [Not Recovered/Not Resolved]
  - Disease complication [Recovering/Resolving]
  - Genital abscess [Recovering/Resolving]
  - Anal abscess [Recovering/Resolving]
  - Odynophagia [Not Recovered/Not Resolved]
  - Anal fistula [Unknown]

NARRATIVE: CASE EVENT DATE: 20190128
